FAERS Safety Report 25522333 (Version 2)
Quarter: 2025Q3

REPORT INFORMATION
  Report Type: Spontaneous
  Country: AU (occurrence: AU)
  Receive Date: 20250707
  Receipt Date: 20250730
  Transmission Date: 20251021
  Serious: No
  Sender: ALEXION PHARMACEUTICALS
  Company Number: AU-AstraZeneca-CH-00884972A

PATIENT
  Age: 59 Year
  Sex: Male

DRUGS (1)
  1. BREZTRI [Suspect]
     Active Substance: BUDESONIDE\FORMOTEROL\GLYCOPYRROLATE
     Indication: Chronic obstructive pulmonary disease
     Dosage: 2 DOSAGE FORM, BID, 2 PUFFS, EACH MORNING AND NIGHT
     Route: 065
     Dates: start: 20230310

REACTIONS (1)
  - Device delivery system issue [Recovered/Resolved]

NARRATIVE: CASE EVENT DATE: 20250501
